FAERS Safety Report 9590002 (Version 1)
Quarter: 2013Q4

REPORT INFORMATION
  Report Type: Spontaneous
  Country: US (occurrence: US)
  Receive Date: 20131003
  Receipt Date: 20131003
  Transmission Date: 20140711
  Serious: No
  Sender: FDA-Public Use
  Company Number: US-AMGEN-USASP2012073368

PATIENT
  Age: 76 Year
  Sex: Female
  Weight: 54.42 kg

DRUGS (13)
  1. ENBREL [Suspect]
     Indication: PRODUCT USED FOR UNKNOWN INDICATION
     Dosage: 50 MG, QWK
     Route: 058
  2. METHOTREXATE [Concomitant]
     Dosage: 2.5 MG, UNK
     Route: 048
  3. RECLAST [Concomitant]
     Dosage: RECLAST INJ 5/100ML IV
  4. LISINOPRIL [Concomitant]
     Dosage: 5 MG, UNK
     Route: 048
  5. CITALOPRAM [Concomitant]
     Dosage: 10 MG, UNK
     Route: 048
  6. ACYCLOVIR                          /00587301/ [Concomitant]
     Dosage: CAP 200MG PO
     Route: 048
  7. PRILOSEC                           /00661201/ [Concomitant]
     Dosage: 10 MG, UNK
     Route: 048
  8. METOPROLOL TARTRATE [Concomitant]
     Dosage: 25 MG, UNK
     Route: 048
  9. HYDROCODONE W/APAP                 /00607101/ [Concomitant]
     Dosage: 5-500 MG, UNK
     Route: 048
  10. POTASIM [Concomitant]
     Dosage: 75 MG, UNK
     Route: 048
  11. VITAMIN D                          /00107901/ [Concomitant]
     Dosage: 1000 UNIT, UNK
     Route: 048
  12. FOLIC ACID [Concomitant]
     Dosage: UNK
     Route: 048
  13. TYLENOL                            /00020001/ [Concomitant]
     Dosage: 500 MG, UNK
     Route: 048

REACTIONS (1)
  - Oral pain [Unknown]
